FAERS Safety Report 5724938-8 (Version None)
Quarter: 2008Q2

REPORT INFORMATION
  Report Type: 
  Country: None (occurrence: None)
  Receive Date: 20080501
  Receipt Date: 20080421
  Transmission Date: 20081010
  Serious: Yes (Hospitalization)
  Sender: FDA-Public Use
  Company Number: AU-AMGEN-US177691

PATIENT
  Age: 37 Year
  Sex: Male

DRUGS (5)
  1. NEULASTA [Suspect]
     Indication: CHEMOTHERAPY
     Route: 065
     Dates: start: 20060414
  2. VINBLASTINE SULFATE [Concomitant]
     Route: 065
     Dates: start: 20060413
  3. IFOSFAMIDE [Concomitant]
     Route: 065
     Dates: start: 20060413
  4. CARBOPLATIN [Concomitant]
     Route: 065
     Dates: start: 20060413
  5. MESNA [Concomitant]
     Route: 065
     Dates: start: 20060413

REACTIONS (1)
  - NEUTROPENIC SEPSIS [None]
